FAERS Safety Report 9202228 (Version 1)
Quarter: 2013Q2

REPORT INFORMATION
  Report Type: Spontaneous
  Country: GB (occurrence: GB)
  Receive Date: 20130401
  Receipt Date: 20130401
  Transmission Date: 20140414
  Serious: Yes (Hospitalization)
  Sender: FDA-Public Use
  Company Number: GB-MUTUAL PHARMACEUTICAL COMPANY, INC.-ALLP20130049

PATIENT
  Sex: Female

DRUGS (1)
  1. ALLOPURINOL [Suspect]
     Indication: GOUT
     Route: 065

REACTIONS (4)
  - Granulomatous liver disease [Unknown]
  - Abdominal distension [Recovered/Resolved]
  - Hepatomegaly [Unknown]
  - Nausea [Recovered/Resolved]
